FAERS Safety Report 7102670-6 (Version None)
Quarter: 2010Q4

REPORT INFORMATION
  Report Type: 
  Country: None (occurrence: None)
  Receive Date: 20101115
  Receipt Date: 20101104
  Transmission Date: 20110411
  Serious: Yes (Other)
  Sender: FDA-Public Use
  Company Number: GB-JNJFOC-20101101421

PATIENT
  Sex: Male

DRUGS (2)
  1. HALOPERIDOL [Suspect]
     Indication: ILL-DEFINED DISORDER
     Route: 065
  2. OLANZAPINE [Suspect]
     Indication: ILL-DEFINED DISORDER
     Route: 065

REACTIONS (6)
  - COMA [None]
  - DROOLING [None]
  - DYSPHEMIA [None]
  - FALL [None]
  - JOINT SWELLING [None]
  - MOBILITY DECREASED [None]
